FAERS Safety Report 16640885 (Version 1)
Quarter: 2019Q3

REPORT INFORMATION
  Report Type: Spontaneous
  Country: DK (occurrence: DK)
  Receive Date: 20190729
  Receipt Date: 20190729
  Transmission Date: 20191004
  Serious: Yes (Hospitalization, Disabling)
  Sender: FDA-Public Use
  Company Number: DK-ASTRAZENECA-2019SF05467

PATIENT
  Sex: Male

DRUGS (2)
  1. BRILIQUE [Suspect]
     Active Substance: TICAGRELOR
     Indication: ANTICOAGULANT THERAPY
     Route: 048
     Dates: start: 20161106, end: 20170216
  2. HJERTEMAGNYL [ACETYLSALICYLIC ACID\MAGNESIUM OXIDE] [Suspect]
     Active Substance: ASPIRIN\MAGNESIUM OXIDE
     Indication: ANTICOAGULANT THERAPY
     Route: 048
     Dates: start: 20161106, end: 20170216

REACTIONS (13)
  - Intracranial pressure increased [Unknown]
  - Cerebral thrombosis [Recovered/Resolved with Sequelae]
  - Depressed level of consciousness [Unknown]
  - Hemiparesis [Unknown]
  - Encephalitis [Unknown]
  - Confusional state [Unknown]
  - Headache [Unknown]
  - Cognitive disorder [Not Recovered/Not Resolved]
  - Dementia [Not Recovered/Not Resolved]
  - Pyrexia [Unknown]
  - Hemianopia homonymous [Not Recovered/Not Resolved]
  - Myocardial infarction [Unknown]
  - Cerebral haematoma [Unknown]

NARRATIVE: CASE EVENT DATE: 201702
